FAERS Safety Report 6336410-5 (Version None)
Quarter: 2009Q3

REPORT INFORMATION
  Report Type: 
  Country: None (occurrence: None)
  Receive Date: 20090828
  Receipt Date: 20090817
  Transmission Date: 20100115
  Serious: Yes (Other)
  Sender: FDA-Public Use
  Company Number: 2009AP003333

PATIENT
  Age: 52 Year
  Sex: Female

DRUGS (7)
  1. CILOSTAZOL [Suspect]
     Indication: INTERMITTENT CLAUDICATION
     Dosage: 100 MG; TID PO, 100 MG; TAB; PO; TID
     Route: 048
     Dates: start: 20090723, end: 20090806
  2. HYDROCHLOROTHIAZIDE [Concomitant]
  3. METOPROLOL TARTRATE [Concomitant]
  4. CANDESARTAN CILEXETIL [Concomitant]
  5. ASPIRIN [Concomitant]
  6. ATORVASTATIN CALCIUM [Concomitant]
  7. VARENICLINE TARTRATE (VARENICLINE TARTRATE) [Concomitant]

REACTIONS (3)
  - AGITATION [None]
  - ANXIETY [None]
  - PALPITATIONS [None]
